FAERS Safety Report 6540091-5 (Version None)
Quarter: 2010Q1

REPORT INFORMATION
  Report Type: 
  Country: None (occurrence: None)
  Receive Date: 20100115
  Receipt Date: 20100112
  Transmission Date: 20100710
  Serious: Yes (Other)
  Sender: FDA-Public Use
  Company Number: GB-PFIZER INC-2009290140

PATIENT
  Age: 75 Year
  Sex: Female

DRUGS (1)
  1. LYRICA [Suspect]
     Indication: PAIN
     Dosage: 75 MG, ONCE OR TWICE DAILY
     Route: 048
     Dates: start: 20090501

REACTIONS (1)
  - CARDIAC FAILURE [None]
